FAERS Safety Report 9491241 (Version 2)
Quarter: 2013Q1

REPORT INFORMATION
  Report Type: Not Available
  Country: US (occurrence: US)
  Receive Date: 20120619
  Receipt Date: 20120619
  Transmission Date: 20140127
  Serious: Yes (Other)
  Sender: FDA-Public Use
  Company Number: US-LUNDBECK-DKLU1077902

PATIENT
  Sex: Female

DRUGS (13)
  1. SABRIL     (TABLET) [Suspect]
     Indication: INFANTILE SPASMS
     Route: 048
     Dates: start: 20120302
  2. SABRIL     (TABLET) [Suspect]
     Route: 048
     Dates: start: 201203
  3. SABRIL     (TABLET) [Suspect]
     Route: 048
     Dates: start: 20120324
  4. SABRIL     (TABLET) [Suspect]
     Route: 048
     Dates: start: 20120324
  5. SABRIL     (TABLET) [Suspect]
     Route: 048
  6. SABRIL     (TABLET) [Suspect]
     Route: 048
  7. SABRIL     (TABLET) [Suspect]
     Route: 048
  8. RISPERDAL [Concomitant]
     Indication: PRODUCT USED FOR UNKNOWN INDICATION
  9. ACTH [Concomitant]
     Indication: PRODUCT USED FOR UNKNOWN INDICATION
  10. CLONAZEPAM [Concomitant]
     Indication: PRODUCT USED FOR UNKNOWN INDICATION
  11. LAMOTRIGINE [Concomitant]
     Indication: CONVULSION
  12. TOPIRAMATE [Concomitant]
     Indication: CONVULSION
  13. TOPIRAMATE [Concomitant]

REACTIONS (4)
  - Convulsion [Recovering/Resolving]
  - Anger [Unknown]
  - Irritability [Unknown]
  - Abnormal behaviour [Unknown]
